FAERS Safety Report 16452821 (Version 3)
Quarter: 2019Q2

REPORT INFORMATION
  Report Type: Report from Study
  Country: US (occurrence: US)
  Receive Date: 20190619
  Receipt Date: 20190627
  Transmission Date: 20190711
  Serious: No
  Sender: FDA-Public Use
  Company Number: US-SA-2019SA159358

PATIENT
  Age: 77 Year
  Sex: Female

DRUGS (1)
  1. DUPILUMAB [Suspect]
     Active Substance: DUPILUMAB
     Indication: ASTHMA
     Dosage: 300 MG, QOW
     Route: 058
     Dates: start: 20190601

REACTIONS (17)
  - Peripheral swelling [Unknown]
  - Pruritus [Unknown]
  - Nausea [Unknown]
  - Pain in extremity [Unknown]
  - Weight increased [Not Recovered/Not Resolved]
  - Hyperhidrosis [Unknown]
  - Peripheral swelling [Recovering/Resolving]
  - Diarrhoea [Unknown]
  - Joint swelling [Unknown]
  - Muscle spasms [Unknown]
  - Insomnia [Unknown]
  - Unevaluable event [Unknown]
  - Headache [Unknown]
  - Vomiting [Unknown]
  - Feeling of body temperature change [Unknown]
  - Paraesthesia [Not Recovered/Not Resolved]
  - Swelling [Recovering/Resolving]

NARRATIVE: CASE EVENT DATE: 201906
